FAERS Safety Report 5322480-X (Version None)
Quarter: 2007Q2

REPORT INFORMATION
  Report Type: 
  Country: None (occurrence: None)
  Receive Date: 20070220
  Receipt Date: 20070105
  Transmission Date: 20071010
  Serious: No
  Sender: FDA-Public Use
  Company Number: TPA2007A00091

PATIENT
  Age: 60 Year
  Sex: Male
  Weight: 111.1313 kg

DRUGS (7)
  1. ROZEREM [Suspect]
     Indication: INITIAL INSOMNIA
     Dosage: 8 MG, HS, PER ORAL
     Route: 048
     Dates: start: 20061001
  2. UNKNOWN STEROID (ALL OTHER THERAPEUTIC PRODUCTS) [Concomitant]
  3. FOSAMAX [Concomitant]
  4. NPH INSULIN (INSULIN INJECTION, ISOPHANE) [Concomitant]
  5. MAGNESIUM SUPPLEMENT (MAGNESIUM) [Concomitant]
  6. CALCIUM SUPPLEMENT (CALCIUM) [Concomitant]
  7. PROGRAF [Concomitant]

REACTIONS (2)
  - DRUG INEFFECTIVE [None]
  - INITIAL INSOMNIA [None]
